FAERS Safety Report 10683251 (Version 4)
Quarter: 2015Q2

REPORT INFORMATION
  Report Type: Report from Study
  Country: MX (occurrence: MX)
  Receive Date: 20141230
  Receipt Date: 20150529
  Transmission Date: 20150821
  Serious: Yes (Other)
  Sender: FDA-Public Use
  Company Number: PHHY2014MX056538

PATIENT
  Age: 69 Year
  Sex: Male

DRUGS (16)
  1. CILOPRIN [Concomitant]
     Indication: PRODUCT USED FOR UNKNOWN INDICATION
     Dosage: 1 DF, QD
     Route: 065
  2. TRADJENTA [Concomitant]
     Active Substance: LINAGLIPTIN
     Indication: PRODUCT USED FOR UNKNOWN INDICATION
     Dosage: 1 DF, QD
     Route: 065
  3. VYTORIN [Concomitant]
     Active Substance: EZETIMIBE\SIMVASTATIN
     Indication: PRODUCT USED FOR UNKNOWN INDICATION
     Dosage: 1 DF, QD
     Route: 065
     Dates: start: 201105
  4. NITRADISC [Concomitant]
     Indication: PRODUCT USED FOR UNKNOWN INDICATION
     Dosage: 1 DF, QD
     Route: 065
  5. LASIX [Concomitant]
     Active Substance: FUROSEMIDE
     Indication: PRODUCT USED FOR UNKNOWN INDICATION
     Dosage: 5 DF, QD
     Route: 065
  6. GALVUS MET [Suspect]
     Active Substance: METFORMIN HYDROCHLORIDE\VILDAGLIPTIN
     Indication: DIABETES MELLITUS
     Dosage: 1 DF(850/50 UNITS NOT REPORTED), BID (IN THE MORNING AND AT NIGHT)
     Route: 048
  7. CO-DIOVAN [Suspect]
     Active Substance: HYDROCHLOROTHIAZIDE\VALSARTAN
     Indication: PRODUCT USED FOR UNKNOWN INDICATION
     Dosage: 160 MG, UNK
     Route: 065
  8. PROCORALAN [Concomitant]
     Active Substance: IVABRADINE
     Indication: CARDIAC DISORDER
     Dosage: 2 DF, QD
     Route: 065
     Dates: start: 201305
  9. EVIPRESS [Concomitant]
     Indication: BLOOD PRESSURE ABNORMAL
     Dosage: 25 MG, QD
     Route: 065
     Dates: start: 201403
  10. DIOVAN [Suspect]
     Active Substance: VALSARTAN
     Indication: HYPERTENSION
     Dosage: 160 MG , BID (ONE TABLET IN THE MORNING AND ONE TABLET IN THE EVENING)
     Route: 048
  11. DIOVAN [Suspect]
     Active Substance: VALSARTAN
     Dosage: 0.5 DF OF 320 MG, BID (1/2 TABLET IN THE MORNING AND 1/2 TABLET IN THE EVENING)
     Route: 048
  12. DISGREN [Concomitant]
     Indication: PRODUCT USED FOR UNKNOWN INDICATION
     Dosage: 2 DF, QD
     Route: 065
  13. OMEPRAZOLE. [Concomitant]
     Active Substance: OMEPRAZOLE
     Indication: PRODUCT USED FOR UNKNOWN INDICATION
     Dosage: 1 DF, QD
     Route: 065
  14. DIOVAN [Suspect]
     Active Substance: VALSARTAN
     Dosage: 160 MG , BID (ONE TABLET IN THE MORNING AND ONE TABLET IN THE EVENING)
     Route: 048
  15. DILATREND [Concomitant]
     Active Substance: CARVEDILOL
     Indication: THROMBOSIS PROPHYLAXIS
     Dosage: 2 DF, QD
     Route: 065
  16. MICCIL [Concomitant]
     Indication: PROPHYLAXIS
     Dosage: 1 MG, QD
     Route: 065

REACTIONS (11)
  - Joint swelling [Recovered/Resolved]
  - Renal impairment [Recovered/Resolved]
  - Blood glucose abnormal [Recovered/Resolved]
  - Dehydration [Not Recovered/Not Resolved]
  - Blood glucose increased [Not Recovered/Not Resolved]
  - Single functional kidney [Not Recovered/Not Resolved]
  - Fall [Recovered/Resolved]
  - Thrombosis [Recovered/Resolved]
  - Pulmonary oedema [Not Recovered/Not Resolved]
  - Cardiac failure [Not Recovered/Not Resolved]
  - Pancreatitis [Not Recovered/Not Resolved]

NARRATIVE: CASE EVENT DATE: 201410
